FAERS Safety Report 19802672 (Version 1)
Quarter: 2021Q3

REPORT INFORMATION
  Report Type: Spontaneous
  Country: US (occurrence: US)
  Receive Date: 20210908
  Receipt Date: 20210908
  Transmission Date: 20211014
  Serious: Yes (Other)
  Sender: FDA-Public Use
  Company Number: None

PATIENT
  Age: 70 Year
  Sex: Female
  Weight: 60.75 kg

DRUGS (6)
  1. BUDESONIDE EC [Concomitant]
     Active Substance: BUDESONIDE
  2. VITAMIN D3 [Concomitant]
     Active Substance: CHOLECALCIFEROL
  3. MELATONIN [Concomitant]
     Active Substance: MELATONIN
  4. CALTRATE [Concomitant]
     Active Substance: CALCIUM CARBONATE
  5. ALIGN (PROBIOTIC) [Concomitant]
  6. CHANTIX [Suspect]
     Active Substance: VARENICLINE TARTRATE
     Indication: EX-TOBACCO USER
     Dosage: ?          OTHER FREQUENCY:AS DIRECTED ON BOX;?
     Route: 048
     Dates: start: 20210316, end: 20210330

REACTIONS (1)
  - Colitis microscopic [None]

NARRATIVE: CASE EVENT DATE: 20210329
